FAERS Safety Report 18900382 (Version 2)
Quarter: 2021Q1

REPORT INFORMATION
  Report Type: Spontaneous
  Country: US (occurrence: US)
  Receive Date: 20210216
  Receipt Date: 20210222
  Transmission Date: 20210420
  Serious: Yes (Death)
  Sender: FDA-Public Use
  Company Number: US-CELGENEUS-USA-20210203950

PATIENT
  Age: 91 Year
  Sex: Female

DRUGS (4)
  1. RETACRIT [Concomitant]
     Active Substance: EPOETIN ALFA-EPBX
     Indication: CHRONIC KIDNEY DISEASE
     Dosage: 6000 IU (INTERNATIONAL UNIT)
     Route: 065
     Dates: start: 20181123, end: 20210213
  2. EPOGEN [Concomitant]
     Active Substance: ERYTHROPOIETIN
     Indication: MYELOPROLIFERATIVE NEOPLASM
     Dosage: 20000 IU (INTERNATIONAL UNIT)
     Route: 065
     Dates: start: 20180531, end: 20210213
  3. INREBIC [Suspect]
     Active Substance: FEDRATINIB HYDROCHLORIDE
     Indication: OFF LABEL USE
  4. INREBIC [Suspect]
     Active Substance: FEDRATINIB HYDROCHLORIDE
     Indication: MYELOPROLIFERATIVE NEOPLASM
     Dosage: 400 MILLIGRAM
     Route: 048
     Dates: start: 20200930

REACTIONS (1)
  - Death [Fatal]

NARRATIVE: CASE EVENT DATE: 20210213
